FAERS Safety Report 6957419-4 (Version None)
Quarter: 2010Q3

REPORT INFORMATION
  Report Type: 
  Country: None (occurrence: None)
  Receive Date: 20100826
  Receipt Date: 20100812
  Transmission Date: 20110219
  Serious: Yes (Other)
  Sender: FDA-Public Use
  Company Number: AUR-APL-2010-02077

PATIENT
  Age: 40 Year
  Sex: Female

DRUGS (2)
  1. CARISOPRODOL [Suspect]
     Dosage: 58TABS, OVER 6D, ORAL
     Route: 048
  2. OXYCODONE HCL AND ACETAMINOPHEN [Concomitant]

REACTIONS (8)
  - BLOOD CREATINE PHOSPHOKINASE INCREASED [None]
  - DRY SKIN [None]
  - HYPOTENSION [None]
  - MOBILITY DECREASED [None]
  - OVERDOSE [None]
  - PUPILLARY REFLEX IMPAIRED [None]
  - SEROTONIN SYNDROME [None]
  - TACHYCARDIA [None]
